FAERS Safety Report 5473624-0 (Version None)
Quarter: 2007Q4

REPORT INFORMATION
  Report Type: 
  Country: None (occurrence: None)
  Receive Date: 20071001
  Receipt Date: 20070919
  Transmission Date: 20080405
  Serious: Yes (Hospitalization, Other)
  Sender: FDA-Public Use
  Company Number: IT-PFIZER INC-2007078595

PATIENT
  Age: 21 Year
  Sex: Female

DRUGS (1)
  1. CYTOTEC [Suspect]
     Indication: ABORTION

REACTIONS (4)
  - HAEMOLYTIC ANAEMIA [None]
  - OFF LABEL USE [None]
  - OVERDOSE [None]
  - RHABDOMYOLYSIS [None]
